FAERS Safety Report 4397154-2 (Version None)
Quarter: 2004Q3

REPORT INFORMATION
  Report Type: 
  Country: None (occurrence: None)
  Receive Date: 20040714
  Receipt Date: 20040524
  Transmission Date: 20050211
  Serious: Yes (Other)
  Sender: FDA-Public Use
  Company Number: AU-ROCHE-368444

PATIENT
  Age: 40 Year
  Sex: Female
  Weight: 53 kg

DRUGS (2)
  1. ROACCUTANE [Suspect]
     Indication: ACNE
     Dosage: 2 TIMES 20 MG AND 1 TIME 10 MG. DOSAGE REGIMEN WAS ALSO REPORTED AS 40+20.
     Route: 048
     Dates: start: 20040329, end: 20040411
  2. ROACCUTANE [Suspect]
     Dosage: DOSAGE REGIMEN WAS ALSO REPORTED AS 40+20.
     Route: 048
     Dates: start: 20040412, end: 20040510

REACTIONS (6)
  - ALOPECIA [None]
  - ANOREXIA [None]
  - ARTHRALGIA [None]
  - LETHARGY [None]
  - MYALGIA [None]
  - VISION BLURRED [None]
